FAERS Safety Report 7951637-4 (Version None)
Quarter: 2011Q4

REPORT INFORMATION
  Report Type: 
  Country: None (occurrence: None)
  Receive Date: 20111201
  Receipt Date: 20111124
  Transmission Date: 20120403
  Serious: Yes (Other)
  Sender: FDA-Public Use
  Company Number: RU-JNJFOC-20111011145

PATIENT
  Age: 25 Year
  Sex: Male

DRUGS (5)
  1. CARBAMAZEPINE [Concomitant]
     Route: 065
  2. TOPAMAX [Suspect]
     Indication: EPILEPSY
     Route: 048
  3. TOPAMAX [Suspect]
     Route: 048
  4. TOPAMAX [Suspect]
     Route: 048
  5. CARBAMAZEPINE [Concomitant]
     Route: 065

REACTIONS (3)
  - PSYCHOTIC DISORDER [None]
  - DELIRIUM [None]
  - AGGRESSION [None]
